FAERS Safety Report 9099946 (Version 2)
Quarter: 2013Q1

REPORT INFORMATION
  Report Type: Spontaneous
  Country: CL (occurrence: CL)
  Receive Date: 20130215
  Receipt Date: 20130228
  Transmission Date: 20140127
  Serious: Yes (Other)
  Sender: FDA-Public Use
  Company Number: CL-PFIZER INC-2013056070

PATIENT
  Age: 65 Year
  Sex: Male

DRUGS (1)
  1. PRISTIQ [Suspect]
     Indication: ANXIETY
     Dosage: 50 MG, 1X/DAY
     Route: 048
     Dates: start: 20130204, end: 20130204

REACTIONS (10)
  - Mental impairment [Recovered/Resolved]
  - Disorientation [Recovered/Resolved]
  - Restlessness [Recovered/Resolved]
  - Dry mouth [Recovered/Resolved]
  - Dysarthria [Recovered/Resolved]
  - Tremor [Recovered/Resolved]
  - Musculoskeletal pain [Recovered/Resolved]
  - Tinnitus [Recovered/Resolved]
  - Poor quality sleep [Recovered/Resolved]
  - Psychiatric decompensation [Recovered/Resolved]
